FAERS Safety Report 8059419-2 (Version None)
Quarter: 2012Q1

REPORT INFORMATION
  Report Type: 
  Country: None (occurrence: None)
  Receive Date: 20120117
  Receipt Date: 20120106
  Transmission Date: 20120608
  Serious: No
  Sender: FDA-Public Use
  Company Number: 2012SP001428

PATIENT
  Age: 31 Year
  Sex: Female

DRUGS (3)
  1. VALIUM [Concomitant]
  2. SAPHRIS [Suspect]
     Indication: BIPOLAR DISORDER
     Dosage: 5 MG;HS;SL
     Route: 060
     Dates: start: 20111201
  3. ABILIFY [Concomitant]

REACTIONS (4)
  - RESTLESS LEGS SYNDROME [None]
  - RASH [None]
  - INAPPROPRIATE SCHEDULE OF DRUG ADMINISTRATION [None]
  - AKATHISIA [None]
